FAERS Safety Report 8601776-X (Version None)
Quarter: 2012Q3

REPORT INFORMATION
  Report Type: 
  Country: None (occurrence: None)
  Receive Date: 20120817
  Receipt Date: 20120620
  Transmission Date: 20120928
  Serious: Yes (Other)
  Sender: FDA-Public Use
  Company Number: US-BRISTOL-MYERS SQUIBB COMPANY-16508293

PATIENT
  Age: 62 Year
  Sex: Female

DRUGS (2)
  1. FERROUS SULFATE TAB [Concomitant]
     Dosage: 1DF:25 M(UNITS NOS).
     Route: 048
  2. SPRYCEL [Suspect]
     Indication: CHRONIC MYELOID LEUKAEMIA
     Route: 048
     Dates: start: 20120223, end: 20120306

REACTIONS (2)
  - GASTRITIS [None]
  - HIATUS HERNIA [None]
